FAERS Safety Report 8348417-7 (Version None)
Quarter: 2012Q2

REPORT INFORMATION
  Report Type: 
  Country: None (occurrence: None)
  Receive Date: 20120509
  Receipt Date: 20120504
  Transmission Date: 20120825
  Serious: Yes (Other)
  Sender: FDA-Public Use
  Company Number: CHPA2012US009989

PATIENT
  Age: 54 Year
  Sex: Female

DRUGS (5)
  1. RANITIDINE [Concomitant]
  2. ALPRAZOLAM [Concomitant]
  3. LISINOPRIL [Concomitant]
  4. LASIX [Concomitant]
  5. PREVACID 24 HR [Suspect]
     Indication: GASTRITIS
     Dosage: 15 MG, QD
     Route: 048
     Dates: start: 20090101, end: 20120401

REACTIONS (7)
  - ABDOMINAL DISCOMFORT [None]
  - DISEASE RECURRENCE [None]
  - GALLBLADDER DISORDER [None]
  - MALAISE [None]
  - THERAPEUTIC RESPONSE UNEXPECTED [None]
  - INCORRECT DRUG ADMINISTRATION DURATION [None]
  - OFF LABEL USE [None]
